FAERS Safety Report 23759333 (Version 1)
Quarter: 2024Q2

REPORT INFORMATION
  Report Type: Spontaneous
  Country: US (occurrence: None)
  Receive Date: 20240418
  Receipt Date: 20240418
  Transmission Date: 20240715
  Serious: No
  Sender: FDA-Public Use
  Company Number: US-ROCHE-3388844

PATIENT
  Age: 66 Year
  Sex: Female
  Weight: 47.6 kg

DRUGS (5)
  1. PIRFENIDONE [Suspect]
     Active Substance: PIRFENIDONE
     Indication: Product used for unknown indication
     Dosage: 1 TABLET 3  TIMES A DAY
     Route: 065
  2. PIRFENIDONE [Suspect]
     Active Substance: PIRFENIDONE
     Dosage: 2 TABLETS 3 TIMES A DAY
     Route: 065
  3. TYVASO [Suspect]
     Active Substance: TREPROSTINIL
     Indication: Pulmonary arterial hypertension
     Route: 055
     Dates: start: 202306
  4. TYVASO [Suspect]
     Active Substance: TREPROSTINIL
     Route: 055
     Dates: start: 20230607
  5. TYVASO [Suspect]
     Active Substance: TREPROSTINIL
     Route: 055
     Dates: start: 2023

REACTIONS (12)
  - Nausea [Unknown]
  - Malaise [Unknown]
  - Dyspnoea [Not Recovered/Not Resolved]
  - Feeling abnormal [Unknown]
  - Somnolence [Unknown]
  - Glossodynia [Unknown]
  - Swollen tongue [Unknown]
  - Flushing [Unknown]
  - Headache [Unknown]
  - Rhinorrhoea [Unknown]
  - Salivary hypersecretion [Unknown]
  - Hypotension [Unknown]

NARRATIVE: CASE EVENT DATE: 20230601
